FAERS Safety Report 8968883 (Version 3)
Quarter: 2013Q3

REPORT INFORMATION
  Report Type: Report from Study
  Country: AU (occurrence: AU)
  Receive Date: 20121217
  Receipt Date: 20130813
  Transmission Date: 20140515
  Serious: Yes (Life-Threatening, Hospitalization)
  Sender: FDA-Public Use
  Company Number: AU-ROCHE-1167947

PATIENT
  Age: 73 Year
  Sex: Female
  Weight: 80 kg

DRUGS (16)
  1. RANIBIZUMAB [Suspect]
     Indication: PRODUCT USED FOR UNKNOWN INDICATION
     Route: 050
     Dates: start: 20110414
  2. RANIBIZUMAB [Suspect]
     Route: 050
     Dates: start: 20111114
  3. RANIBIZUMAB [Suspect]
     Route: 050
     Dates: start: 20120220
  4. RANIBIZUMAB [Suspect]
     Route: 050
     Dates: start: 20130430
  5. RANIBIZUMAB [Suspect]
     Route: 050
     Dates: start: 20130509
  6. RANIBIZUMAB [Suspect]
     Route: 050
     Dates: start: 20130628
  7. ATORVASTATIN [Concomitant]
     Route: 065
     Dates: start: 1999
  8. PERINDOPRIL [Concomitant]
     Route: 065
     Dates: start: 1999
  9. SPIRONOLACTONE [Concomitant]
     Route: 065
     Dates: start: 1999
  10. BISOPROLOL [Concomitant]
     Route: 065
     Dates: start: 1999
  11. FUROSEMIDE [Concomitant]
     Route: 065
     Dates: start: 1999
  12. CORTISONE [Concomitant]
     Route: 065
     Dates: start: 1999
  13. ASPIRIN [Concomitant]
     Route: 065
     Dates: start: 1999
  14. AMLODIPINE [Concomitant]
     Route: 065
     Dates: start: 1999
  15. COVERSYL [Concomitant]
  16. NOREL [Concomitant]

REACTIONS (2)
  - Acute myocardial infarction [Recovered/Resolved]
  - Cerebrovascular accident [Recovered/Resolved]
